FAERS Safety Report 4357971-1 (Version None)
Quarter: 2004Q2

REPORT INFORMATION
  Report Type: 
  Country: None (occurrence: None)
  Receive Date: 20040513
  Receipt Date: 20040513
  Transmission Date: 20050107
  Serious: No
  Sender: FDA-Public Use
  Company Number: None

PATIENT
  Age: 61 Year
  Weight: 77.1115 kg

DRUGS (1)
  1. SYNVISC 16 MG [Suspect]
     Indication: OSTEOARTHRITIS
     Dosage: 16 MG Q WEEK INTRA-ARTICUL
     Route: 014
     Dates: start: 20040415, end: 20040428

REACTIONS (1)
  - JOINT EFFUSION [None]
